FAERS Safety Report 8624120-0 (Version None)
Quarter: 2012Q3

REPORT INFORMATION
  Report Type: 
  Country: None (occurrence: None)
  Receive Date: 20120824
  Receipt Date: 20120824
  Transmission Date: 20120928
  Serious: Yes (Other)
  Sender: FDA-Public Use
  Company Number: None

PATIENT
  Sex: Female
  Weight: 64.4108 kg

DRUGS (1)
  1. CYTOTEC [Suspect]
     Indication: INDUCED LABOUR
     Dosage: ONCE VAGINALLY
     Route: 067

REACTIONS (7)
  - BACK PAIN [None]
  - HEADACHE [None]
  - CHILLS [None]
  - NECK PAIN [None]
  - MUSCLE SPASMS [None]
  - TREMOR [None]
  - DIARRHOEA [None]
